FAERS Safety Report 4822921-8 (Version None)
Quarter: 2005Q4

REPORT INFORMATION
  Report Type: 
  Country: None (occurrence: None)
  Receive Date: 20051108
  Receipt Date: 20051103
  Transmission Date: 20060501
  Serious: Yes (Hospitalization)
  Sender: FDA-Public Use
  Company Number: FR-BRISTOL-MYERS SQUIBB COMPANY-13168349

PATIENT
  Age: 14 Month
  Sex: Male

DRUGS (1)
  1. MUCOMYST [Suspect]
     Indication: PRODUCTIVE COUGH
     Dosage: 1 SPOON
     Route: 048

REACTIONS (2)
  - COUGH [None]
  - INJURY ASPHYXIATION [None]
